FAERS Safety Report 12337027 (Version 1)
Quarter: 2016Q2

REPORT INFORMATION
  Report Type: Spontaneous
  Country: US (occurrence: None)
  Receive Date: 20160504
  Receipt Date: 20160504
  Transmission Date: 20160815
  Serious: No
  Sender: FDA-Public Use
  Company Number: None

PATIENT
  Age: 76 Year
  Sex: Female
  Weight: 74.84 kg

DRUGS (14)
  1. SPIRONOLACTONE. [Concomitant]
     Active Substance: SPIRONOLACTONE
  2. SIMVASTATIN. [Concomitant]
     Active Substance: SIMVASTATIN
  3. BRILINTA [Suspect]
     Active Substance: TICAGRELOR
     Indication: STENT PLACEMENT
     Route: 048
     Dates: start: 20160312, end: 20160319
  4. ISOSORB [Concomitant]
  5. FUROSEMINE [Concomitant]
  6. ASPIRIN. [Concomitant]
     Active Substance: ASPIRIN
  7. OMEGA 4 [Concomitant]
  8. PLAVIX [Concomitant]
     Active Substance: CLOPIDOGREL BISULFATE
  9. LASIX [Concomitant]
     Active Substance: FUROSEMIDE
  10. DIGOXIN. [Concomitant]
     Active Substance: DIGOXIN
  11. CITAPRAM [Concomitant]
  12. KLOR-CON [Concomitant]
     Active Substance: POTASSIUM CHLORIDE
  13. METOPROLOL. [Concomitant]
     Active Substance: METOPROLOL
  14. GABAPENTIN. [Concomitant]
     Active Substance: GABAPENTIN

REACTIONS (2)
  - Dyspnoea [None]
  - Dyspnoea exertional [None]

NARRATIVE: CASE EVENT DATE: 20160312
